FAERS Safety Report 7243957-6 (Version None)
Quarter: 2011Q1

REPORT INFORMATION
  Report Type: 
  Country: None (occurrence: None)
  Receive Date: 20110125
  Receipt Date: 20110113
  Transmission Date: 20110831
  Serious: Yes (Other)
  Sender: FDA-Public Use
  Company Number: PHHY2010ZA90355

PATIENT
  Sex: Male
  Weight: 18.6 kg

DRUGS (2)
  1. GLEEVEC [Suspect]
     Indication: CHRONIC MYELOID LEUKAEMIA
     Dosage: 500 MG, BID
     Dates: start: 20100801, end: 20101001
  2. GLEEVEC [Suspect]
     Dosage: 400 MG, BID

REACTIONS (4)
  - GROWTH RETARDATION [None]
  - VOMITING [None]
  - GENE MUTATION IDENTIFICATION TEST POSITIVE [None]
  - DRUG INTOLERANCE [None]
